FAERS Safety Report 13787213 (Version 1)
Quarter: 2017Q3

REPORT INFORMATION
  Report Type: Spontaneous
  Country: US (occurrence: US)
  Receive Date: 20170725
  Receipt Date: 20170725
  Transmission Date: 20171127
  Serious: Yes (Hospitalization)
  Sender: FDA-Public Use
  Company Number: US-JNJFOC-20170626375

PATIENT
  Age: 86 Year
  Sex: Female
  Weight: 56.25 kg

DRUGS (1)
  1. DESITIN MAXIMUM STRENGTH ORIGINAL [Suspect]
     Active Substance: ZINC OXIDE
     Indication: PROPHYLAXIS
     Dosage: JUST A DAB ON TOILET PAPER, WEEKLY BASIS
     Route: 061

REACTIONS (4)
  - Drug administered to patient of inappropriate age [Not Recovered/Not Resolved]
  - Dry skin [Not Recovered/Not Resolved]
  - Rash erythematous [Recovering/Resolving]
  - Product use in unapproved indication [Not Recovered/Not Resolved]
